FAERS Safety Report 9809288 (Version 1)
Quarter: 2014Q1

REPORT INFORMATION
  Report Type: Spontaneous
  Country: JP (occurrence: JP)
  Receive Date: 20140110
  Receipt Date: 20140110
  Transmission Date: 20141002
  Serious: Yes (Hospitalization)
  Sender: FDA-Public Use
  Company Number: PHHY2013JP155074

PATIENT
  Age: 61 Year
  Sex: Male

DRUGS (2)
  1. CLOPIDOGREL [Suspect]
     Indication: ANTIPLATELET THERAPY
     Dosage: 75 MG, UNK
  2. ACETYLSALICYLIC ACID [Suspect]
     Indication: ANTIPLATELET THERAPY
     Dosage: 100 MG, UNK

REACTIONS (7)
  - Depressed level of consciousness [Recovered/Resolved]
  - Hydrocephalus [Unknown]
  - Headache [Recovered/Resolved]
  - Parinaud syndrome [Unknown]
  - Diplopia [Unknown]
  - Haemorrhagic cyst [Unknown]
  - Intraventricular haemorrhage [Unknown]
